FAERS Safety Report 6807430-9 (Version None)
Quarter: 2010Q2

REPORT INFORMATION
  Report Type: 
  Country: None (occurrence: None)
  Receive Date: 20100629
  Receipt Date: 20080919
  Transmission Date: 20101027
  Serious: No
  Sender: FDA-Public Use
  Company Number: US-PFIZER INC-2008079380

PATIENT
  Sex: Male
  Weight: 75 kg

DRUGS (13)
  1. VIAGRA [Suspect]
     Indication: ERECTILE DYSFUNCTION
  2. HYDRALAZINE HCL [Concomitant]
  3. LISINOPRIL [Concomitant]
  4. NIACIN [Concomitant]
  5. ZOCOR [Concomitant]
  6. ACETYLSALICYLIC ACID [Concomitant]
  7. GLUCOSAMINE [Concomitant]
  8. MULTI-VITAMINS [Concomitant]
  9. ASCORBIC ACID [Concomitant]
  10. FOLIC ACID [Concomitant]
  11. RANITIDINE HYDROCHLORIDE [Concomitant]
  12. DOCUSATE [Concomitant]
  13. LEVOTHYROXINE SODIUM [Concomitant]

REACTIONS (2)
  - ERECTILE DYSFUNCTION [None]
  - PROSTATIC SPECIFIC ANTIGEN INCREASED [None]
